FAERS Safety Report 4595601-4 (Version None)
Quarter: 2005Q1

REPORT INFORMATION
  Report Type: 
  Country: None (occurrence: None)
  Receive Date: 20050223
  Receipt Date: 20050223
  Transmission Date: 20050727
  Serious: Yes (Hospitalization)
  Sender: FDA-Public Use
  Company Number: None

PATIENT
  Age: 69 Year
  Sex: Male
  Weight: 80.5 kg

DRUGS (4)
  1. DIGOXIN [Suspect]
     Indication: ARRHYTHMIA
     Dosage: 1 TABLET Q AM PO
     Route: 048
     Dates: start: 20030716
  2. ATENOLOL [Suspect]
     Indication: HYPERTENSION
     Dosage: 1 TABLET  Q AM PO/ NO DOSE CHANGE
     Route: 048
     Dates: start: 20030716
  3. ATENOLOL [Suspect]
     Indication: MYOCARDIAL INFARCTION
     Dosage: 1 TABLET  Q AM PO/ NO DOSE CHANGE
     Route: 048
     Dates: start: 20030716
  4. BACTRIM [Concomitant]

REACTIONS (8)
  - ASTHENIA [None]
  - ATRIOVENTRICULAR BLOCK COMPLETE [None]
  - BRADYCARDIA [None]
  - CRACKLES LUNG [None]
  - DIZZINESS [None]
  - DYSPNOEA [None]
  - SINUS TACHYCARDIA [None]
  - TACHYPNOEA [None]
